FAERS Safety Report 6018374-7 (Version None)
Quarter: 2008Q4

REPORT INFORMATION
  Report Type: 
  Country: None (occurrence: None)
  Receive Date: 20081218
  Receipt Date: 20081022
  Transmission Date: 20090506
  Serious: Yes (Other)
  Sender: FDA-Public Use
  Company Number: 08-001682

PATIENT
  Age: 20 Year
  Sex: Female
  Weight: 62.6 kg

DRUGS (3)
  1. LOESTRIN 24 FE [Suspect]
     Indication: ACNE
     Dosage: 20/1000 UG, QD, ORAL
     Route: 048
     Dates: start: 20070101
  2. LOESTRIN 24 FE [Suspect]
     Indication: MENSTRUAL CYCLE MANAGEMENT
     Dosage: 20/1000 UG, QD, ORAL
     Route: 048
     Dates: start: 20070101
  3. MINOCYCLINE HCL [Concomitant]

REACTIONS (3)
  - RETINAL DEPOSITS [None]
  - VISION BLURRED [None]
  - VISUAL IMPAIRMENT [None]
